FAERS Safety Report 11259111 (Version 1)
Quarter: 2015Q3

REPORT INFORMATION
  Report Type: Spontaneous
  Country: GB (occurrence: GB)
  Receive Date: 20150710
  Receipt Date: 20150710
  Transmission Date: 20151125
  Serious: Yes (Other)
  Sender: FDA-Public Use
  Company Number: GB-PFIZER INC-2015223881

PATIENT
  Age: 79 Year
  Sex: Male
  Weight: 60 kg

DRUGS (2)
  1. VENLAFAXINE HCL [Suspect]
     Active Substance: VENLAFAXINE HYDROCHLORIDE
     Indication: DEPRESSION
     Dosage: 150 MG, 2X/DAY
     Dates: end: 201408
  2. VENLAFAXINE HCL [Suspect]
     Active Substance: VENLAFAXINE HYDROCHLORIDE
     Dosage: 225 MG DAILY
     Dates: start: 201408

REACTIONS (10)
  - Memory impairment [Unknown]
  - Cerebral small vessel ischaemic disease [Unknown]
  - Aphasia [Unknown]
  - Depressive symptom [Unknown]
  - Condition aggravated [Unknown]
  - Asthenia [Unknown]
  - Thinking abnormal [Unknown]
  - Drug ineffective [Unknown]
  - Cerebral atrophy [Unknown]
  - Cognitive disorder [Unknown]

NARRATIVE: CASE EVENT DATE: 2014
